FAERS Safety Report 8479087 (Version 3)
Quarter: 2013Q3

REPORT INFORMATION
  Report Type: Spontaneous
  Country: US (occurrence: US)
  Receive Date: 20120327
  Receipt Date: 20130730
  Transmission Date: 20140515
  Serious: Yes (Hospitalization, Other)
  Sender: FDA-Public Use
  Company Number: US-ROCHE-789770

PATIENT
  Age: 17 Year
  Sex: Male
  Weight: 74.91 kg

DRUGS (2)
  1. ACCUTANE [Suspect]
     Indication: ACNE
     Route: 048
     Dates: start: 20021004, end: 200305
  2. METHYLPHENIDATE [Concomitant]
     Route: 065

REACTIONS (9)
  - Colitis ulcerative [Unknown]
  - Emotional distress [Unknown]
  - Inflammatory bowel disease [Unknown]
  - Depression [Unknown]
  - Small intestinal obstruction [Unknown]
  - Lip dry [Unknown]
  - Dyspnoea [Unknown]
  - Xerosis [Unknown]
  - Rash papular [Unknown]
